FAERS Safety Report 4760162-3 (Version None)
Quarter: 2005Q3

REPORT INFORMATION
  Report Type: 
  Country: None (occurrence: None)
  Receive Date: 20050831
  Receipt Date: 20050810
  Transmission Date: 20060218
  Serious: Yes (Hospitalization)
  Sender: FDA-Public Use
  Company Number: US_0507120343

PATIENT
  Age: 61 Year
  Sex: Female
  Weight: 56 kg

DRUGS (14)
  1. PEMETREXED [Suspect]
     Indication: NON-SMALL CELL LUNG CANCER
     Dosage: 780 MG
     Dates: start: 20050713
  2. GEMCITABINE HYDROCHLORIDE-IV (GEMCITABINE) [Suspect]
     Indication: NON-SMALL CELL LUNG CANCER
     Dosage: 2340 MG
     Dates: start: 20050713
  3. SYNTHROID [Concomitant]
  4. LIPITOR [Concomitant]
  5. ADVAIR DISKUS 100/50 [Concomitant]
  6. PREDNISONE TAB [Concomitant]
  7. COMBIVENT [Concomitant]
  8. XANAX [Concomitant]
  9. FOLIC ACID [Concomitant]
  10. PEPCID [Concomitant]
  11. CLARITIN [Concomitant]
  12. ALBUTEROL [Concomitant]
  13. DECADRON [Concomitant]
  14. VITAMIN B-12 [Concomitant]

REACTIONS (9)
  - AMMONIA INCREASED [None]
  - DISEASE PROGRESSION [None]
  - ELECTROENCEPHALOGRAM ABNORMAL [None]
  - ENCEPHALOPATHY [None]
  - HEPATIC ENCEPHALOPATHY [None]
  - MITRAL VALVE INCOMPETENCE [None]
  - NON-SMALL CELL LUNG CANCER METASTATIC [None]
  - PERICARDIAL EFFUSION [None]
  - TRICUSPID VALVE INCOMPETENCE [None]
